FAERS Safety Report 5959812-5 (Version None)
Quarter: 2008Q4

REPORT INFORMATION
  Report Type: 
  Country: None (occurrence: None)
  Receive Date: 20081120
  Receipt Date: 20081118
  Transmission Date: 20090506
  Serious: Yes (Hospitalization)
  Sender: FDA-Public Use
  Company Number: A0757331A

PATIENT
  Age: 85 Year
  Sex: Female
  Weight: 68 kg

DRUGS (4)
  1. AVANDIA [Suspect]
     Indication: DIABETES MELLITUS
     Dosage: 4MG PER DAY
     Route: 048
     Dates: start: 20081029
  2. LOSARTAN POTASSIUM AND HYDROCHLOROTHIAZIDE [Concomitant]
     Dosage: 50MG PER DAY
     Dates: start: 20081017
  3. BETAHISTINE HYDROCHLORIDE [Concomitant]
     Dosage: 8MG PER DAY
     Dates: start: 20071101
  4. HYDROCHLOROTHIAZIDE [Concomitant]
     Dosage: 20MG PER DAY
     Dates: start: 20061101

REACTIONS (6)
  - DIARRHOEA [None]
  - FATIGUE [None]
  - FLUSHING [None]
  - HYPERGLYCAEMIA [None]
  - LUNG DISORDER [None]
  - VOMITING [None]
